FAERS Safety Report 5785964-6 (Version None)
Quarter: 2008Q2

REPORT INFORMATION
  Report Type: 
  Country: None (occurrence: None)
  Receive Date: 20080620
  Receipt Date: 20080620
  Transmission Date: 20081010
  Serious: Yes (Hospitalization)
  Sender: FDA-Public Use
  Company Number: None

PATIENT
  Age: 38 Year
  Sex: Male
  Weight: 82 kg

DRUGS (4)
  1. TEMODAR [Suspect]
     Indication: GLIOBLASTOMA
     Dosage: 325 MG DAILY PO
     Route: 048
     Dates: start: 20080604, end: 20080608
  2. AVASTIN [Concomitant]
  3. ONDANSETRON [Concomitant]
  4. PHENYTOIN [Concomitant]

REACTIONS (8)
  - COMPUTERISED TOMOGRAM ABNORMAL [None]
  - DEHYDRATION [None]
  - MALAISE [None]
  - POSTNASAL DRIP [None]
  - PRODUCTIVE COUGH [None]
  - PYREXIA [None]
  - SCAR [None]
  - SINUSITIS [None]
